FAERS Safety Report 14438021 (Version 5)
Quarter: 2018Q2

REPORT INFORMATION
  Report Type: Report from Study
  Country: FR (occurrence: FR)
  Receive Date: 20180125
  Receipt Date: 20180606
  Transmission Date: 20180711
  Serious: Yes (Other)
  Sender: FDA-Public Use
  Company Number: PHHY2018FR009744

PATIENT
  Sex: Female
  Weight: 70 kg

DRUGS (3)
  1. SOLU-MEDROL [Suspect]
     Active Substance: METHYLPREDNISOLONE SODIUM SUCCINATE
     Indication: PRODUCT USED FOR UNKNOWN INDICATION
     Dosage: UNK
     Route: 065
  2. POLARAMINE [Suspect]
     Active Substance: DEXCHLORPHENIRAMINE MALEATE
     Indication: PRODUCT USED FOR UNKNOWN INDICATION
     Dosage: UNK
     Route: 065
  3. GILENYA [Suspect]
     Active Substance: FINGOLIMOD HYDROCHLORIDE
     Indication: MULTIPLE SCLEROSIS
     Dosage: 0.5 MG, QD
     Route: 048
     Dates: start: 20151022

REACTIONS (15)
  - Urinary tract infection [Recovered/Resolved]
  - Leukopenia [Recovered/Resolved]
  - Leukopenia [Recovered/Resolved]
  - Lymphopenia [Recovered/Resolved]
  - Lymphopenia [Recovered/Resolved]
  - Hypersensitivity [Recovered/Resolved]
  - Escherichia urinary tract infection [Recovered/Resolved]
  - Leukopenia [Recovered/Resolved]
  - Leukopenia [Not Recovered/Not Resolved]
  - Lymphopenia [Recovered/Resolved]
  - Lymphopenia [Recovered/Resolved]
  - Transaminases increased [Recovered/Resolved]
  - Lymphopenia [Recovered/Resolved]
  - Neutropenia [Recovered/Resolved]
  - Leukopenia [Recovered/Resolved]

NARRATIVE: CASE EVENT DATE: 20151216
